FAERS Safety Report 5068901-1 (Version None)
Quarter: 2006Q3

REPORT INFORMATION
  Report Type: 
  Country: None (occurrence: None)
  Receive Date: 20060802
  Receipt Date: 20060530
  Transmission Date: 20061208
  Serious: No
  Sender: FDA-Public Use
  Company Number: US-BRISTOL-MYERS SQUIBB COMPANY-13394713

PATIENT
  Age: 61 Year
  Sex: Female
  Weight: 70 kg

DRUGS (5)
  1. COUMADIN [Suspect]
     Indication: AORTIC VALVE REPLACEMENT
     Dosage: 2.5 MG 2 DAYS WEEKLY + 5 MG 5 DAYS WEEKLY
  2. ALLEGRA [Concomitant]
  3. ATENOLOL [Concomitant]
  4. PREMARIN [Concomitant]
  5. MULTI-VITAMIN [Concomitant]

REACTIONS (2)
  - INTERNATIONAL NORMALISED RATIO FLUCTUATION [None]
  - PAROSMIA [None]
